FAERS Safety Report 17146914 (Version 2)
Quarter: 2020Q2

REPORT INFORMATION
  Report Type: Report from Study
  Country: PL (occurrence: PL)
  Receive Date: 20191212
  Receipt Date: 20200629
  Transmission Date: 20200713
  Serious: Yes (Death, Hospitalization, Other)
  Sender: FDA-Public Use
  Company Number: PL-ACTELION-A-US2019-199420

PATIENT
  Age: 70 Year
  Sex: Male

DRUGS (2)
  1. VENTAVIS [Suspect]
     Active Substance: ILOPROST
     Indication: PULMONARY ARTERIAL HYPERTENSION
     Dosage: 5 MCG, 6ID
     Route: 055
     Dates: start: 20170414
  2. VENTAVIS [Suspect]
     Active Substance: ILOPROST
     Dosage: 20 UNK
     Route: 055

REACTIONS (5)
  - Investigation [Recovered/Resolved]
  - Incorrect dose administered [Unknown]
  - Product quality issue [Unknown]
  - Death [Fatal]
  - Colorectal cancer [Unknown]

NARRATIVE: CASE EVENT DATE: 20191024
